FAERS Safety Report 18599788 (Version 10)
Quarter: 2025Q2

REPORT INFORMATION
  Report Type: Spontaneous
  Country: US (occurrence: US)
  Receive Date: 20201210
  Receipt Date: 20250423
  Transmission Date: 20250717
  Serious: Yes (Hospitalization, Other)
  Sender: PFIZER
  Company Number: US-PFIZER INC-2020483736

PATIENT
  Age: 67 Year
  Sex: Female
  Weight: 99.79 kg

DRUGS (8)
  1. XELJANZ XR [Suspect]
     Active Substance: TOFACITINIB CITRATE
     Indication: Rheumatoid arthritis
     Dosage: 11 MG, 1X/DAY
     Route: 048
  2. XELJANZ XR [Suspect]
     Active Substance: TOFACITINIB CITRATE
     Dosage: 11 MG, DAILY
     Route: 048
  3. PREDNISONE [Concomitant]
     Active Substance: PREDNISONE
  4. METHOTREXATE [Concomitant]
     Active Substance: METHOTREXATE
  5. FOLIC ACID [Concomitant]
     Active Substance: FOLIC ACID
  6. AMLODIPINE [Concomitant]
     Active Substance: AMLODIPINE BESYLATE
     Indication: Blood pressure abnormal
  7. LOSARTAN [Concomitant]
     Active Substance: LOSARTAN
     Indication: Blood pressure abnormal
  8. LACTULOSE [Concomitant]
     Active Substance: LACTULOSE

REACTIONS (10)
  - Spinal operation [Unknown]
  - Neoplasm malignant [Unknown]
  - Mental impairment [Unknown]
  - Weight decreased [Unknown]
  - Body height decreased [Unknown]
  - Panic reaction [Unknown]
  - Brain fog [Unknown]
  - Gait disturbance [Unknown]
  - Pain [Unknown]
  - Feeling abnormal [Unknown]

NARRATIVE: CASE EVENT DATE: 20210629
